FAERS Safety Report 8313497-1 (Version None)
Quarter: 2012Q2

REPORT INFORMATION
  Report Type: 
  Country: None (occurrence: None)
  Receive Date: 20120426
  Receipt Date: 20120424
  Transmission Date: 20120825
  Serious: Yes (Death)
  Sender: FDA-Public Use
  Company Number: PHEH2012US008764

PATIENT
  Sex: Male

DRUGS (11)
  1. VOTRIENT [Suspect]
     Dosage: 200 MG, 2 TABLETS IN THE MRG AND 2 IN THE EVE
     Route: 048
  2. VITAMIN B1 TAB [Concomitant]
     Dosage: 100 MG, UNK
  3. AMARYL [Concomitant]
     Dosage: 2 MG, UNK
  4. PREVACID [Concomitant]
     Dosage: 30 MG, UNK
  5. VITAMIN D [Concomitant]
     Dosage: 1000 U, UNK
  6. HYDROXYZINE HYDROCHLORIDE [Concomitant]
     Dosage: 10 MG, UNK
  7. ARIXTRA [Concomitant]
  8. SPIRONOLACTONE [Concomitant]
     Dosage: 50 MG, UNK
  9. LOPRESSOR [Concomitant]
     Dosage: 50 MG, UNK
  10. CALCIUM [Concomitant]
     Dosage: 600 OT, UNK
  11. AFINITOR [Suspect]
     Dates: start: 20060101

REACTIONS (1)
  - DEATH [None]
